FAERS Safety Report 16479951 (Version 2)
Quarter: 2019Q3

REPORT INFORMATION
  Report Type: Report from Study
  Country: US (occurrence: US)
  Receive Date: 20190626
  Receipt Date: 20190711
  Transmission Date: 20191004
  Serious: Yes (Death)
  Sender: FDA-Public Use
  Company Number: US-ACTELION-A-NJ2018-175803

PATIENT
  Age: 61 Year
  Sex: Female

DRUGS (34)
  1. UPTRAVI [Suspect]
     Active Substance: SELEXIPAG
     Indication: PULMONARY ARTERIAL HYPERTENSION
     Dosage: 1200 MCG, BID
     Route: 048
     Dates: start: 20180630
  2. UPTRAVI [Suspect]
     Active Substance: SELEXIPAG
     Dosage: 1000 MCG, BID
     Route: 048
  3. OPSUMIT [Suspect]
     Active Substance: MACITENTAN
     Indication: PULMONARY ARTERIAL HYPERTENSION
     Dosage: 10 MG, QD
     Route: 048
     Dates: start: 20171228, end: 20190611
  4. LIOTHYRONINE [Concomitant]
     Active Substance: LIOTHYRONINE
  5. METHYLPRED [Concomitant]
     Active Substance: METHYLPREDNISOLONE
  6. SIMVASTATIN. [Concomitant]
     Active Substance: SIMVASTATIN
  7. ALENDRONATE [Concomitant]
     Active Substance: ALENDRONATE SODIUM
  8. UPTRAVI [Suspect]
     Active Substance: SELEXIPAG
     Dosage: UNK
     Route: 048
  9. UPTRAVI [Suspect]
     Active Substance: SELEXIPAG
     Dosage: 400 MCG, BID
     Route: 048
     Dates: start: 20180709
  10. UPTRAVI [Suspect]
     Active Substance: SELEXIPAG
     Dosage: 800 MCG, BID
     Route: 048
  11. ONDANSETRON [Concomitant]
     Active Substance: ONDANSETRON
  12. IBANDRONATE [Concomitant]
     Active Substance: IBANDRONATE SODIUM
  13. NOVOLOG [Concomitant]
     Active Substance: INSULIN ASPART
  14. TRAZODONE [Concomitant]
     Active Substance: TRAZODONE HYDROCHLORIDE
  15. MOMETASONE [Concomitant]
     Active Substance: MOMETASONE
  16. BIMATOPROST. [Concomitant]
     Active Substance: BIMATOPROST
  17. ASPIRIN. [Concomitant]
     Active Substance: ASPIRIN
  18. BUMETANIDE. [Concomitant]
     Active Substance: BUMETANIDE
  19. LEVOTHYROXIN [Concomitant]
     Active Substance: LEVOTHYROXINE
  20. ZALEPLON. [Concomitant]
     Active Substance: ZALEPLON
  21. ENOXAPARIN [Concomitant]
     Active Substance: ENOXAPARIN
  22. LANTUS [Concomitant]
     Active Substance: INSULIN GLARGINE
  23. PROMETHAZINE [Concomitant]
     Active Substance: PROMETHAZINE HYDROCHLORIDE
  24. SPIRONOLACTONE. [Concomitant]
     Active Substance: SPIRONOLACTONE
  25. ADVAIR HFA [Concomitant]
     Active Substance: FLUTICASONE PROPIONATE\SALMETEROL XINAFOATE
  26. SILDENAFIL. [Concomitant]
     Active Substance: SILDENAFIL
  27. ROBAFEN AC [Concomitant]
     Active Substance: CODEINE PHOSPHATE\GUAIFENESIN
  28. ATORVASTATIN [Concomitant]
     Active Substance: ATORVASTATIN
  29. MYCOPHENOLATE [Concomitant]
     Active Substance: MYCOPHENOLIC ACID
  30. AMOXIC+A-CLAV.GI K [Concomitant]
  31. METOCLOPRAM [Concomitant]
     Active Substance: METOCLOPRAMIDE
  32. METOPROLOL. [Concomitant]
     Active Substance: METOPROLOL
  33. POTASSIUM CHLORIDE. [Concomitant]
     Active Substance: POTASSIUM CHLORIDE
  34. CLOTRIMAZOLE. [Concomitant]
     Active Substance: CLOTRIMAZOLE

REACTIONS (26)
  - Rash [Unknown]
  - Headache [Not Recovered/Not Resolved]
  - Pain [Unknown]
  - Respiratory failure [Fatal]
  - Dyspepsia [Unknown]
  - Erythema [Unknown]
  - Pleural effusion [Fatal]
  - Hearing disability [Unknown]
  - Pulmonary congestion [Fatal]
  - Nausea [Not Recovered/Not Resolved]
  - Arthralgia [Unknown]
  - Vomiting [Unknown]
  - Epistaxis [Unknown]
  - Nasal congestion [Not Recovered/Not Resolved]
  - Pulmonary arterial hypertension [Fatal]
  - Condition aggravated [Fatal]
  - Lung consolidation [Fatal]
  - Right ventricular dilatation [Fatal]
  - Fatigue [Not Recovered/Not Resolved]
  - Myalgia [Unknown]
  - Left ventricular hypertrophy [Fatal]
  - Pain in extremity [Unknown]
  - Pain in jaw [Unknown]
  - Visual impairment [Unknown]
  - Oedema peripheral [Unknown]
  - Hypotension [Not Recovered/Not Resolved]

NARRATIVE: CASE EVENT DATE: 20180709
